FAERS Safety Report 25893302 (Version 1)
Quarter: 2025Q4

REPORT INFORMATION
  Report Type: Spontaneous
  Country: US (occurrence: US)
  Receive Date: 20251008
  Receipt Date: 20251008
  Transmission Date: 20260117
  Serious: Yes (Hospitalization, Other)
  Sender: DIFGEN PHARMACEUTICALS LLC
  Company Number: US-Difgen-012175

PATIENT
  Age: 17 Year
  Sex: Male

DRUGS (5)
  1. OXYCODONE [Suspect]
     Active Substance: OXYCODONE
     Indication: Abdominal pain
     Route: 065
  2. HERBALS\TETRAHYDROCANNABINOL UNSPECIFIED [Suspect]
     Active Substance: HERBALS\TETRAHYDROCANNABINOL UNSPECIFIED
     Indication: Product used for unknown indication
     Route: 065
  3. BUPRENORPHINE\NALOXONE [Suspect]
     Active Substance: BUPRENORPHINE\NALOXONE
     Indication: Drug use disorder
     Dosage: BUPRENORPHINE 2MG/ NALOXONE 0.5MG SUBLINGUAL FILM
     Route: 060
  4. BUPRENORPHINE [Suspect]
     Active Substance: BUPRENORPHINE
     Indication: Drug use disorder
     Dosage: SUBCUTANEOUS EXTENDED RELEASE BUPRENORPHINE
     Route: 058
  5. FENTANYL [Suspect]
     Active Substance: FENTANYL
     Indication: Abdominal pain
     Dosage: INJECTION VIA INTRANASAL ROUTE
     Route: 065

REACTIONS (6)
  - Adulterated product [Recovered/Resolved]
  - Drug dependence [Recovered/Resolved]
  - Drug use disorder [Recovered/Resolved]
  - Drug withdrawal syndrome [Recovered/Resolved]
  - Treatment noncompliance [Unknown]
  - Off label use [Unknown]
